FAERS Safety Report 4649046-9 (Version None)
Quarter: 2005Q2

REPORT INFORMATION
  Report Type: 
  Country: None (occurrence: None)
  Receive Date: 20050429
  Receipt Date: 20050421
  Transmission Date: 20051028
  Serious: Yes (Other)
  Sender: FDA-Public Use
  Company Number: AU-JNJFOC-20050203774

PATIENT
  Sex: Female

DRUGS (1)
  1. HALDOL [Suspect]
     Indication: SCHIZOAFFECTIVE DISORDER
     Dosage: 15-200 MG
     Route: 050

REACTIONS (2)
  - ANTIPHOSPHOLIPID ANTIBODIES POSITIVE [None]
  - GALACTORRHOEA [None]
